FAERS Safety Report 8232249-4 (Version None)
Quarter: 2012Q1

REPORT INFORMATION
  Report Type: 
  Country: None (occurrence: None)
  Receive Date: 20120323
  Receipt Date: 20120312
  Transmission Date: 20120608
  Serious: Yes (Death, Hospitalization, Other)
  Sender: FDA-Public Use
  Company Number: US-ACTELION-A-NJ2012-61240

PATIENT

DRUGS (9)
  1. RENAGEL [Concomitant]
  2. NEPHROCAPS [Concomitant]
  3. SENSIPAR [Concomitant]
  4. EPOPROSTENOL SODIUM [Suspect]
     Indication: PULMONARY ARTERIAL HYPERTENSION
     Dosage: 22.5 NG/KG, PER MIN
     Route: 041
     Dates: start: 20111014, end: 20120219
  5. TRACLEER [Suspect]
     Indication: PULMONARY ARTERIAL HYPERTENSION
     Dosage: UNK
     Route: 048
     Dates: start: 20120131
  6. CARDIAZEM [Concomitant]
  7. SILDENAFIL [Concomitant]
  8. COUMADIN [Concomitant]
  9. AMIODARONE HYDROCHLORIDE [Concomitant]

REACTIONS (6)
  - CARDIO-RESPIRATORY ARREST [None]
  - PULMONARY ARTERIAL HYPERTENSION [None]
  - HYPOTENSION [None]
  - RESUSCITATION [None]
  - CONDITION AGGRAVATED [None]
  - ENDOTRACHEAL INTUBATION [None]
